FAERS Safety Report 8552383-9 (Version None)
Quarter: 2012Q3

REPORT INFORMATION
  Report Type: 
  Country: None (occurrence: None)
  Receive Date: 20120723
  Receipt Date: 20120723
  Transmission Date: 20120928
  Serious: Yes (Life-Threatening, Hospitalization)
  Sender: FDA-Public Use
  Company Number: None

PATIENT
  Sex: Female
  Weight: 76.8 kg

DRUGS (1)
  1. NITROFURANTOIN [Suspect]
     Indication: CYSTITIS ESCHERICHIA
     Dosage: 100MG B.I.D. ORAL
     Route: 048
     Dates: start: 20120411, end: 20120612

REACTIONS (17)
  - PAIN [None]
  - MALAISE [None]
  - RETCHING [None]
  - CHEST PAIN [None]
  - ERYTHEMA [None]
  - PAIN IN EXTREMITY [None]
  - ARTHRALGIA [None]
  - PYREXIA [None]
  - RENAL IMPAIRMENT [None]
  - NAUSEA [None]
  - DYSSTASIA [None]
  - MOVEMENT DISORDER [None]
  - RASH MACULAR [None]
  - TREMOR [None]
  - DIZZINESS [None]
  - DYSPNOEA [None]
  - BLOOD PRESSURE INCREASED [None]
